FAERS Safety Report 13441959 (Version 1)
Quarter: 2017Q2

REPORT INFORMATION
  Report Type: Spontaneous
  Country: US (occurrence: US)
  Receive Date: 20170413
  Receipt Date: 20170413
  Transmission Date: 20170830
  Serious: Yes (Death, Hospitalization, Other)
  Sender: FDA-Public Use
  Company Number: PHHY2017US055402

PATIENT
  Age: 3 Year
  Sex: Female

DRUGS (1)
  1. DEFERASIROX [Suspect]
     Active Substance: DEFERASIROX
     Indication: THALASSAEMIA BETA
     Dosage: UNK
     Route: 065

REACTIONS (11)
  - Respiratory arrest [Unknown]
  - Metabolic acidosis [Unknown]
  - Lethargy [Fatal]
  - Brain herniation [Unknown]
  - Hypotension [Fatal]
  - Pyrexia [Fatal]
  - Fanconi syndrome [Unknown]
  - Acute hepatic failure [Fatal]
  - Hypophosphataemia [Unknown]
  - Hypokalaemia [Unknown]
  - Diarrhoea [Fatal]
